FAERS Safety Report 19173358 (Version 3)
Quarter: 2021Q3

REPORT INFORMATION
  Report Type: Other
  Country: US (occurrence: US)
  Receive Date: 20210423
  Receipt Date: 20210913
  Transmission Date: 20211014
  Serious: Yes (Other)
  Sender: FDA-Public Use
  Company Number: US-ROCHE-2788212

PATIENT
  Sex: Male

DRUGS (14)
  1. FISH OIL [Concomitant]
     Active Substance: FISH OIL
     Route: 048
  2. PRILOSEC [Concomitant]
     Active Substance: OMEPRAZOLE MAGNESIUM
     Route: 048
  3. CALCITRATE [Concomitant]
     Active Substance: CALCIUM CITRATE
     Route: 048
  4. OSTEO BI?FLEX [Concomitant]
     Active Substance: CHONDROITIN SULFATE A\GLUCOSAMINE
     Dosage: 2 TABLETS DAILY
     Route: 048
  5. ALEVE [Concomitant]
     Active Substance: NAPROXEN SODIUM
     Dosage: TAKE 1 TABLET EVERY 8 HOURS AS NEEDED
     Route: 048
  6. VITAMIN B6 [Concomitant]
     Active Substance: PYRIDOXINE HYDROCHLORIDE
     Route: 048
  7. PROAIR HFA [Concomitant]
     Active Substance: ALBUTEROL SULFATE
  8. VENTOLIN HFA [Concomitant]
     Active Substance: ALBUTEROL SULFATE
  9. TYLENOL [Concomitant]
     Active Substance: ACETAMINOPHEN
  10. PROVENTIL HFA [Concomitant]
     Active Substance: ALBUTEROL SULFATE
     Indication: DYSPNOEA
  11. ESBRIET [Suspect]
     Active Substance: PIRFENIDONE
     Indication: IDIOPATHIC PULMONARY FIBROSIS
     Dosage: TAKE 1 TABLET BY MOUTH 3 TIMES A DAY
     Route: 048
  12. PROVENTIL HFA [Concomitant]
     Active Substance: ALBUTEROL SULFATE
     Indication: WHEEZING
     Dosage: INHALE 2 PUFFS BY MOUTH INTO THE LUNGS EVERY 6 HOURS AS NEEDED
  13. ASPIRIN EC [Concomitant]
     Active Substance: ASPIRIN
     Route: 048
  14. VITAMIN C [Concomitant]
     Active Substance: ASCORBIC ACID
     Route: 048

REACTIONS (1)
  - Hernia [Unknown]
